FAERS Safety Report 11528400 (Version 1)
Quarter: 2015Q3

REPORT INFORMATION
  Report Type: Spontaneous
  Country: US (occurrence: US)
  Receive Date: 20150921
  Receipt Date: 20150921
  Transmission Date: 20151125
  Serious: No
  Sender: FDA-Public Use
  Company Number: US-TEVA-543489USA

PATIENT
  Sex: Female

DRUGS (12)
  1. KEPPRA [Suspect]
     Active Substance: LEVETIRACETAM
     Route: 065
  2. TOPAMAX [Suspect]
     Active Substance: TOPIRAMATE
     Route: 065
  3. ONFI [Suspect]
     Active Substance: CLOBAZAM
     Route: 065
  4. PHENOBARBITAL. [Suspect]
     Active Substance: PHENOBARBITAL
     Route: 065
  5. FELBATOL [Suspect]
     Active Substance: FELBAMATE
     Route: 065
  6. ZONEGRAN [Suspect]
     Active Substance: ZONISAMIDE
     Route: 065
  7. LAMICTAL [Suspect]
     Active Substance: LAMOTRIGINE
     Route: 065
  8. STIRIPENTOL [Suspect]
     Active Substance: STIRIPENTOL
     Route: 065
  9. DEPAKENE [Suspect]
     Active Substance: VALPROIC ACID
     Route: 065
  10. CLOBAZAM [Suspect]
     Active Substance: CLOBAZAM
     Route: 065
  11. CLONAZEPAM. [Suspect]
     Active Substance: CLONAZEPAM
     Route: 065
  12. VIMPAT [Suspect]
     Active Substance: LACOSAMIDE
     Route: 065

REACTIONS (5)
  - Adverse event [Unknown]
  - Amnesia [Unknown]
  - Developmental delay [Unknown]
  - Aphasia [Unknown]
  - Drug ineffective [Unknown]
